FAERS Safety Report 9605105 (Version 1)
Quarter: 2013Q4

REPORT INFORMATION
  Report Type: Spontaneous
  Country: FR (occurrence: FR)
  Receive Date: 20131008
  Receipt Date: 20131008
  Transmission Date: 20140711
  Serious: Yes (Hospitalization)
  Sender: FDA-Public Use
  Company Number: FR-UCBSA-099282

PATIENT
  Age: 61 Year
  Sex: Male

DRUGS (4)
  1. KEPPRA [Suspect]
     Route: 048
     Dates: start: 20130722, end: 20130826
  2. SOLUMEDROL [Concomitant]
     Dosage: UNKNOWN
  3. INEXIUM [Concomitant]
     Dosage: UNKNOWN
  4. LOVENOX [Concomitant]
     Dosage: 0.4 ML/ 24 HR

REACTIONS (2)
  - Thrombocytopenia [Recovering/Resolving]
  - Pulmonary embolism [Unknown]
